FAERS Safety Report 5752952-5 (Version None)
Quarter: 2008Q2

REPORT INFORMATION
  Report Type: 
  Country: None (occurrence: None)
  Receive Date: 20080527
  Receipt Date: 20080507
  Transmission Date: 20081010
  Serious: Yes (Other)
  Sender: FDA-Public Use
  Company Number: S08-GER-01834-01

PATIENT
  Age: 52 Year
  Sex: Female

DRUGS (5)
  1. ESCITALOPRAM [Suspect]
     Dates: start: 20080506, end: 20080506
  2. ESCITALOPRAM [Suspect]
  3. ALCOHOL [Suspect]
     Dates: start: 20080506, end: 20080506
  4. BETADORM [Suspect]
     Dates: start: 20080506, end: 20080506
  5. DOMINAL FORTE (PROTHIPENDYL HYDROCHLORIDE) [Suspect]
     Dates: start: 20080506, end: 20080506

REACTIONS (4)
  - HYPOTENSION [None]
  - INTENTIONAL OVERDOSE [None]
  - SOPOR [None]
  - SUICIDE ATTEMPT [None]
